FAERS Safety Report 9447921 (Version 2)
Quarter: 2013Q4

REPORT INFORMATION
  Report Type: Spontaneous
  Country: JP (occurrence: JP)
  Receive Date: 20130808
  Receipt Date: 20131004
  Transmission Date: 20140711
  Serious: Yes (Other)
  Sender: FDA-Public Use
  Company Number: PHHY2013JP055108

PATIENT
  Age: 52 Year
  Sex: Female

DRUGS (4)
  1. TASIGNA [Suspect]
     Indication: CHRONIC MYELOID LEUKAEMIA
     Dosage: 600 MG, DAILY
     Route: 048
     Dates: start: 20120611
  2. TASIGNA [Suspect]
     Dosage: 400 MG, DAILY
     Route: 048
  3. TASIGNA [Suspect]
     Dosage: 300 MG, DAILY
     Route: 048
  4. TASIGNA [Suspect]
     Dosage: 150 MG, DAILY
     Route: 048
     Dates: end: 201305

REACTIONS (3)
  - Myelodysplastic syndrome [Unknown]
  - Neutrophil count decreased [Recovering/Resolving]
  - Platelet count decreased [Recovering/Resolving]
